FAERS Safety Report 7029611-4 (Version None)
Quarter: 2010Q4

REPORT INFORMATION
  Report Type: 
  Country: None (occurrence: None)
  Receive Date: 20101005
  Receipt Date: 20100923
  Transmission Date: 20110411
  Serious: Yes (Other)
  Sender: FDA-Public Use
  Company Number: US-MERCK-1008USA03645

PATIENT

DRUGS (1)
  1. INVANZ [Suspect]
     Route: 065

REACTIONS (1)
  - RENAL FAILURE ACUTE [None]
